FAERS Safety Report 8098788-4 (Version None)
Quarter: 2012Q1

REPORT INFORMATION
  Report Type: 
  Country: None (occurrence: None)
  Receive Date: 20120131
  Receipt Date: 20120126
  Transmission Date: 20120608
  Serious: No
  Sender: FDA-Public Use
  Company Number: US-BAYER-2012-009600

PATIENT

DRUGS (3)
  1. FLEXERIL [Concomitant]
     Dosage: 10 MG, TID
  2. ALEVE (CAPLET) [Suspect]
     Indication: PRODUCT USED FOR UNKNOWN INDICATION
     Dosage: 500 MG, BID
     Route: 048
  3. ULTRAM [Concomitant]
     Dosage: 100 MG, QID

REACTIONS (1)
  - NO ADVERSE EVENT [None]
